APPROVED DRUG PRODUCT: AEROBID
Active Ingredient: FLUNISOLIDE
Strength: 0.25MG/INH
Dosage Form/Route: AEROSOL, METERED;INHALATION
Application: N018340 | Product #001
Applicant: ROCHE PALO ALTO LLC
Approved: Aug 17, 1984 | RLD: No | RS: No | Type: DISCN